FAERS Safety Report 5041887-1 (Version None)
Quarter: 2006Q2

REPORT INFORMATION
  Report Type: 
  Country: None (occurrence: None)
  Receive Date: 20060630
  Receipt Date: 20060620
  Transmission Date: 20061013
  Serious: Yes (Hospitalization)
  Sender: FDA-Public Use
  Company Number: 007766

PATIENT
  Age: 37 Year
  Sex: Female
  Weight: 49.9 kg

DRUGS (1)
  1. KARIVA [Suspect]
     Indication: ORAL CONTRACEPTION
     Dosage: 1 TABLET, QD, ORAL
     Route: 048
     Dates: start: 20040101, end: 20060512

REACTIONS (5)
  - ANXIETY [None]
  - GASTROINTESTINAL DISORDER [None]
  - INSOMNIA [None]
  - SINUS TACHYCARDIA [None]
  - WEIGHT DECREASED [None]
